FAERS Safety Report 10064505 (Version 1)
Quarter: 2014Q2

REPORT INFORMATION
  Report Type: Spontaneous
  Country: US (occurrence: None)
  Receive Date: 20140407
  Receipt Date: 20140407
  Transmission Date: 20141212
  Serious: Yes (Hospitalization)
  Sender: FDA-Public Use
  Company Number: None

PATIENT
  Sex: Male
  Weight: 113.6 kg

DRUGS (1)
  1. SULFAMETHOXAZOLE/TRIMETHOPRIM [Suspect]
     Indication: INFECTION
     Dosage: 2 TAB BID PO
     Route: 048
     Dates: start: 20140117, end: 20140127

REACTIONS (1)
  - Rash morbilliform [None]
